FAERS Safety Report 6527190-9 (Version None)
Quarter: 2010Q1

REPORT INFORMATION
  Report Type: 
  Country: None (occurrence: None)
  Receive Date: 20100105
  Receipt Date: 20100104
  Transmission Date: 20100710
  Serious: Yes (Hospitalization)
  Sender: FDA-Public Use
  Company Number: B0621585A

PATIENT
  Age: 86 Year
  Sex: Male
  Weight: 88 kg

DRUGS (8)
  1. AUGMENTIN '125' [Suspect]
     Indication: URINARY TRACT INFECTION
     Dosage: 1G THREE TIMES PER DAY
     Route: 042
     Dates: start: 20091016, end: 20091028
  2. OFLOCET [Suspect]
     Indication: URINARY TRACT INFECTION
     Dosage: 200MG PER DAY
     Route: 048
     Dates: start: 20091016, end: 20091028
  3. DEROXAT [Concomitant]
     Indication: DRUG USE FOR UNKNOWN INDICATION
     Route: 065
  4. CO-RENITEC [Concomitant]
     Indication: DRUG USE FOR UNKNOWN INDICATION
     Route: 065
  5. SERESTA [Concomitant]
     Indication: DRUG USE FOR UNKNOWN INDICATION
     Route: 065
  6. DAFALGAN [Concomitant]
     Indication: DRUG USE FOR UNKNOWN INDICATION
     Route: 065
  7. SMECTA [Concomitant]
     Indication: DRUG USE FOR UNKNOWN INDICATION
     Route: 065
  8. PRIMPERAN TAB [Concomitant]
     Indication: DRUG USE FOR UNKNOWN INDICATION
     Route: 065

REACTIONS (7)
  - ABDOMINAL PAIN UPPER [None]
  - ANAEMIA [None]
  - BLOOD CREATININE INCREASED [None]
  - PAIN [None]
  - RENAL FAILURE [None]
  - VASCULAR PURPURA [None]
  - WHITE BLOOD CELL COUNT INCREASED [None]
